FAERS Safety Report 7909668-6 (Version None)
Quarter: 2011Q4

REPORT INFORMATION
  Report Type: 
  Country: None (occurrence: None)
  Receive Date: 20111111
  Receipt Date: 20111103
  Transmission Date: 20120403
  Serious: Yes (Disabling, Other)
  Sender: FDA-Public Use
  Company Number: CH-GLAXOSMITHKLINE-B0686979A

PATIENT
  Age: 31 Year
  Sex: Male
  Weight: 80 kg

DRUGS (5)
  1. PAROXETINE HCL [Suspect]
     Indication: ANXIETY DISORDER
     Dosage: 20MG PER DAY
     Route: 048
     Dates: start: 19980101, end: 20110603
  2. IBUPROFEN [Suspect]
     Indication: PAIN
     Dosage: 400MG THREE TIMES PER DAY
     Route: 048
     Dates: start: 20100401
  3. MAGNESIUM [Concomitant]
     Dosage: 300MG PER DAY
     Route: 048
  4. OMEGA-3 TRIGLYCERIDES [Concomitant]
     Route: 048
  5. BEROCCA C [Concomitant]
     Route: 048

REACTIONS (13)
  - NAUSEA [None]
  - CONFUSIONAL STATE [None]
  - TENSION [None]
  - VERTIGO [None]
  - PARAESTHESIA [None]
  - INSOMNIA [None]
  - ATAXIA [None]
  - FATIGUE [None]
  - VISION BLURRED [None]
  - APHASIA [None]
  - SUICIDAL IDEATION [None]
  - WITHDRAWAL SYNDROME [None]
  - THINKING ABNORMAL [None]
